FAERS Safety Report 17308053 (Version 1)
Quarter: 2020Q1

REPORT INFORMATION
  Report Type: Spontaneous
  Country: TR (occurrence: TR)
  Receive Date: 20200123
  Receipt Date: 20200123
  Transmission Date: 20200409
  Serious: Yes (Other)
  Sender: FDA-Public Use
  Company Number: TR-BAXTER-2020BAX000941

PATIENT
  Age: 2 Year
  Sex: Male

DRUGS (4)
  1. NORADRENALINE [Suspect]
     Active Substance: NOREPINEPHRINE
     Indication: DRUG THERAPY
     Route: 065
  2. PHENOBARBITAL. [Concomitant]
     Active Substance: PHENOBARBITAL
     Indication: SYNCOPE
     Route: 065
  3. SALINE [Concomitant]
     Active Substance: SODIUM CHLORIDE
     Indication: PRODUCT USED FOR UNKNOWN INDICATION
     Dosage: 20 CC/KG
     Route: 065
  4. DOBUTABAG 4000 MCG/ML IV INFUZYONLUK COZELTI (DOBUTAMINE HYDROCHLORIDE\GLUCOSE) [Suspect]
     Active Substance: DEXTROSE\DOBUTAMINE HYDROCHLORIDE
     Indication: DRUG THERAPY
     Route: 065

REACTIONS (3)
  - Cardiac arrest [Recovering/Resolving]
  - Ventricular tachycardia [Unknown]
  - Ventricular fibrillation [Unknown]
